FAERS Safety Report 13209438 (Version 1)
Quarter: 2017Q1

REPORT INFORMATION
  Report Type: Spontaneous
  Country: FR (occurrence: FR)
  Receive Date: 20170209
  Receipt Date: 20170209
  Transmission Date: 20170428
  Serious: Yes (Other)
  Sender: FDA-Public Use
  Company Number: FR-B.I. PHARMACEUTICALS,INC./RIDGEFIELD-2017-BI-006015

PATIENT
  Age: 63 Year
  Sex: Male

DRUGS (6)
  1. ZECLAR [Suspect]
     Active Substance: CLARITHROMYCIN
     Indication: INFECTION
     Route: 042
     Dates: start: 20161218, end: 20161221
  2. HYDROXYZINE MYLAN [Interacting]
     Active Substance: HYDROXYZINE HYDROCHLORIDE
     Indication: AGITATION
     Route: 048
     Dates: start: 20161222, end: 20161222
  3. CATAPRESSAN [Suspect]
     Active Substance: CLONIDINE
     Indication: PRODUCT USED FOR UNKNOWN INDICATION
     Dosage: STRENGTH: 0.15MG/ML
     Route: 042
     Dates: start: 20161222
  4. LOXAPAC [Suspect]
     Active Substance: LOXAPINE SUCCINATE
     Indication: AGITATION
     Route: 048
     Dates: start: 20161221, end: 20161222
  5. EUPRESSYL [Suspect]
     Active Substance: URAPIDIL
     Indication: HYPERTENSION
     Route: 042
     Dates: start: 20161222, end: 20161222
  6. AMOXICILLINE/CLAVULANIC ACID SANDOZ ADULTS [Suspect]
     Active Substance: AMOXICILLIN\CLAVULANIC ACID
     Indication: PRODUCT USED FOR UNKNOWN INDICATION
     Dosage: STRENGTH: 1 G / 200 MG
     Route: 042
     Dates: start: 20161218, end: 20161222

REACTIONS (6)
  - Drug interaction [None]
  - Hypertension [None]
  - Blood pressure decreased [None]
  - Brain natriuretic peptide increased [None]
  - Ventricular tachycardia [Recovered/Resolved]
  - Troponin increased [None]

NARRATIVE: CASE EVENT DATE: 20161223
